FAERS Safety Report 25766244 (Version 3)
Quarter: 2025Q3

REPORT INFORMATION
  Report Type: Spontaneous
  Country: KE (occurrence: KE)
  Receive Date: 20250905
  Receipt Date: 20250911
  Transmission Date: 20251020
  Serious: Yes (Hospitalization, Other)
  Sender: ABBVIE
  Company Number: KE-ABBVIE-6444659

PATIENT
  Sex: Female

DRUGS (6)
  1. SURVANTA [Suspect]
     Active Substance: BERACTANT
     Indication: Respiratory distress
     Route: 037
     Dates: start: 20250701, end: 20250701
  2. CAFFEINE CITRATE [Concomitant]
     Active Substance: CAFFEINE CITRATE
     Indication: Infantile apnoea
     Route: 042
     Dates: start: 20250701, end: 20250812
  3. Benzylpennicillin [Concomitant]
     Indication: Product used for unknown indication
     Route: 042
     Dates: start: 20250702, end: 20250709
  4. Benzylpennicillin [Concomitant]
     Indication: Product used for unknown indication
     Route: 042
     Dates: start: 20250701, end: 20250708
  5. GENTAMICIN [Concomitant]
     Active Substance: GENTAMICIN
     Indication: Sepsis neonatal
     Route: 042
     Dates: start: 20250702, end: 20250709
  6. GENTAMICIN [Concomitant]
     Active Substance: GENTAMICIN
     Indication: Sepsis neonatal
     Route: 042
     Dates: start: 20250701, end: 20250702

REACTIONS (7)
  - Malabsorption [Recovered/Resolved]
  - Therapeutic product effect incomplete [Recovered/Resolved]
  - Mechanical ventilation [Recovered/Resolved]
  - Pneumothorax [Recovered/Resolved with Sequelae]
  - Chronic respiratory disease [Recovered/Resolved with Sequelae]
  - Liquid product physical issue [Not Recovered/Not Resolved]
  - Therapeutic product effect incomplete [Recovered/Resolved with Sequelae]

NARRATIVE: CASE EVENT DATE: 20250701
